FAERS Safety Report 21460935 (Version 1)
Quarter: 2022Q4

REPORT INFORMATION
  Report Type: Spontaneous
  Country: IN (occurrence: IN)
  Receive Date: 20221015
  Receipt Date: 20221015
  Transmission Date: 20230113
  Serious: Yes (Other)
  Sender: FDA-Public Use
  Company Number: IN-STRIDES ARCOLAB LIMITED-2022SP013409

PATIENT
  Age: 46 Year
  Sex: Male

DRUGS (4)
  1. PREDNISOLONE [Suspect]
     Active Substance: PREDNISOLONE
     Indication: Skin disorder
     Dosage: UNK
     Route: 048
  2. TRIAMCINOLONE [Suspect]
     Active Substance: TRIAMCINOLONE
     Indication: Skin disorder
     Dosage: UNK
     Route: 030
  3. BETAMETHASONE [Suspect]
     Active Substance: BETAMETHASONE
     Indication: Skin disorder
     Dosage: UNK (CREAM)
     Route: 061
  4. ITRACONAZOLE [Concomitant]
     Active Substance: ITRACONAZOLE
     Indication: Antifungal treatment
     Dosage: UNK
     Route: 048

REACTIONS (4)
  - Drug abuse [Unknown]
  - Intentional product misuse [Unknown]
  - Dermatophytosis [Recovered/Resolved]
  - Dermatitis exfoliative generalised [Recovered/Resolved]
